FAERS Safety Report 12799001 (Version 1)
Quarter: 2016Q3

REPORT INFORMATION
  Report Type: Spontaneous
  Country: US (occurrence: US)
  Receive Date: 20160930
  Receipt Date: 20160930
  Transmission Date: 20161109
  Serious: No
  Sender: FDA-Public Use
  Company Number: US-PFIZER INC-2016454453

PATIENT
  Age: 84 Year
  Sex: Female

DRUGS (4)
  1. BACITRACIN. [Suspect]
     Active Substance: BACITRACIN
  2. NEOSPORIN AF [Suspect]
     Active Substance: MICONAZOLE NITRATE
     Dosage: UNK
  3. TETRACYCLINE HCL [Suspect]
     Active Substance: TETRACYCLINE HYDROCHLORIDE
  4. POLYSPORIN [Suspect]
     Active Substance: BACITRACIN ZINC\POLYMYXIN B SULFATE

REACTIONS (1)
  - Drug hypersensitivity [Unknown]
